FAERS Safety Report 10411698 (Version 1)
Quarter: 2014Q3

REPORT INFORMATION
  Report Type: Spontaneous
  Country: US (occurrence: None)
  Receive Date: 20140826
  Receipt Date: 20140826
  Transmission Date: 20150326
  Serious: Yes (Death, Hospitalization)
  Sender: FDA-Public Use
  Company Number: None

PATIENT
  Age: 63 Year
  Sex: Male
  Weight: 79.8 kg

DRUGS (2)
  1. DAUNORUBICIN [Suspect]
     Active Substance: DAUNORUBICIN
     Dates: end: 20131214
  2. CYTARABINE. [Suspect]
     Active Substance: CYTARABINE
     Dates: end: 20131218

REACTIONS (5)
  - Drug ineffective [None]
  - Respiratory distress [None]
  - Sepsis [None]
  - Renal failure [None]
  - Aspergillus infection [None]

NARRATIVE: CASE EVENT DATE: 20131218
